FAERS Safety Report 8123000-7 (Version None)
Quarter: 2012Q1

REPORT INFORMATION
  Report Type: 
  Country: None (occurrence: None)
  Receive Date: 20120206
  Receipt Date: 20120123
  Transmission Date: 20120608
  Serious: Yes (Death, Other)
  Sender: FDA-Public Use
  Company Number: 2012MA001062

PATIENT
  Sex: Male
  Weight: 68.9467 kg

DRUGS (20)
  1. TRAZODONE HCL [Concomitant]
  2. VITAMIN B1 TAB [Concomitant]
  3. ALBUTEROL [Concomitant]
  4. APAP TAB [Concomitant]
  5. PRILOSEC [Concomitant]
  6. ZOCOR [Concomitant]
  7. NEXIUM [Concomitant]
  8. DARVOCET-N 100 [Concomitant]
  9. OXYCONTIN [Concomitant]
  10. DIGOXIN [Suspect]
     Indication: PRODUCT USED FOR UNKNOWN INDICATION
     Dosage: 0.25 MG;QD;PO
     Route: 048
     Dates: start: 20060831, end: 20070101
  11. MEGACE [Concomitant]
  12. ASPIRIN [Concomitant]
  13. REGLAN [Concomitant]
  14. TOPROL-XL [Concomitant]
  15. ENALAPRIL MALEATE [Concomitant]
  16. PHENTOLAMINE MESYLATE [Concomitant]
  17. FUROSEMIDE [Concomitant]
  18. PREDNISONE TAB [Concomitant]
  19. METHOTREXATE [Concomitant]
  20. OXYCODONE HCL [Concomitant]

REACTIONS (24)
  - HYPERTENSION [None]
  - ESSENTIAL HYPERTENSION [None]
  - ERECTILE DYSFUNCTION [None]
  - BLOOD CHOLESTEROL INCREASED [None]
  - CORONARY ARTERY DISEASE [None]
  - CARDIAC FAILURE CONGESTIVE [None]
  - RED BLOOD CELL COUNT DECREASED [None]
  - RHEUMATOID ARTHRITIS [None]
  - POLLAKIURIA [None]
  - DYSPNOEA EXERTIONAL [None]
  - ECONOMIC PROBLEM [None]
  - SURGERY [None]
  - FAMILY STRESS [None]
  - BENIGN GASTRIC NEOPLASM [None]
  - LOW DENSITY LIPOPROTEIN INCREASED [None]
  - UNEVALUABLE EVENT [None]
  - NOCTURIA [None]
  - MULTIPLE INJURIES [None]
  - CHRONIC OBSTRUCTIVE PULMONARY DISEASE [None]
  - GASTRITIS [None]
  - BLOOD UREA DECREASED [None]
  - BLOOD ALBUMIN DECREASED [None]
  - MONOCYTE COUNT INCREASED [None]
  - GASTROINTESTINAL TRACT ADENOMA [None]
